FAERS Safety Report 17975202 (Version 1)
Quarter: 2020Q3

REPORT INFORMATION
  Report Type: Other
  Country: GB (occurrence: GB)
  Receive Date: 20200702
  Receipt Date: 20200702
  Transmission Date: 20201103
  Serious: Yes (Other)
  Sender: FDA-Public Use
  Company Number: GB-COVIS PHARMA B.V.-2020COV00269

PATIENT
  Age: 73 Year
  Sex: Female
  Weight: 90 kg

DRUGS (13)
  1. PARACETAMOL [Concomitant]
     Active Substance: ACETAMINOPHEN
     Dosage: 2 DOSAGE UNITS EVERY 4 HOURS, UP TO 4 TIMES A DAY
     Dates: start: 20180731
  2. CEFALEXIN [Concomitant]
     Active Substance: CEPHALEXIN
     Dosage: 1 DOSAGE UNITS, 4X/DAY
     Dates: start: 20191127
  3. OMEPRAZOLE MAGNESIUM. [Suspect]
     Active Substance: OMEPRAZOLE MAGNESIUM
     Dosage: 20 MG, 1X/DAY
     Route: 048
     Dates: start: 20200415
  4. SALBUTAMOL [Concomitant]
     Active Substance: ALBUTEROL
     Dosage: 2 PUFFS UP TO 4 TIMES A DAY
     Route: 055
     Dates: start: 20180731
  5. DOXYCYCLINE. [Concomitant]
     Active Substance: DOXYCYCLINE
     Dosage: 1 DOSAGE UNITS, 1X/DAY
     Dates: start: 20180731
  6. SODIUM HYALURONATE [Concomitant]
     Active Substance: HYALURONATE SODIUM
     Dosage: UNK, USE AS DIRECTED
     Dates: start: 20180731
  7. VISCOTEARS [Concomitant]
     Active Substance: CARBOMER
     Dosage: 1 DROP INT
     Dates: start: 20180731
  8. RANITIDINE. [Concomitant]
     Active Substance: RANITIDINE
     Dosage: 2 DOSAGE UNITS, 1X/DAY
     Dates: start: 20180731, end: 20200415
  9. SALBUTAMOL [Concomitant]
     Active Substance: ALBUTEROL
     Dosage: 1 PUFF UP TO 4 TIMES A DAY
     Route: 055
     Dates: start: 20180731
  10. MONTELUKAST [Concomitant]
     Active Substance: MONTELUKAST SODIUM
     Dosage: 1 DOSAGE UNITS, 1X/DAY AT NIGHT
     Dates: start: 20180731
  11. PARACETAMOL [Concomitant]
     Active Substance: ACETAMINOPHEN
     Dosage: 1 DOSAGE UNITS EVERY 4 HOURS, UP TO 4 TIMES A DAY
     Dates: start: 20180731
  12. AMITRIPTYLINE HYDROCHLORIDE. [Concomitant]
     Active Substance: AMITRIPTYLINE HYDROCHLORIDE
     Dosage: 1 DOSAGE UNITS, 1X/DAY AT NIGHT
     Dates: start: 20180731
  13. FOSTAIR [Concomitant]
     Active Substance: BECLOMETHASONE\FORMOTEROL
     Dosage: 4 DOSAGE UNITS DAILY
     Dates: start: 20180718

REACTIONS (4)
  - Mouth swelling [Unknown]
  - Bronchospasm [Recovered/Resolved]
  - Wheezing [Unknown]
  - Dysgeusia [Unknown]

NARRATIVE: CASE EVENT DATE: 2020
